FAERS Safety Report 6825283-X (Version None)
Quarter: 2010Q3

REPORT INFORMATION
  Report Type: 
  Country: None (occurrence: None)
  Receive Date: 20100708
  Receipt Date: 20061219
  Transmission Date: 20110219
  Serious: No
  Sender: FDA-Public Use
  Company Number: US-PFIZER INC-2007000895

PATIENT
  Sex: Male
  Weight: 117.93 kg

DRUGS (17)
  1. CHANTIX [Suspect]
     Indication: SMOKING CESSATION THERAPY
     Dates: start: 20061101
  2. DOXAZOSIN MESYLATE [Concomitant]
  3. LIPITOR [Concomitant]
  4. ZETIA [Concomitant]
  5. NEURONTIN [Concomitant]
  6. ARTHROTEC [Concomitant]
  7. LISINOPRIL [Concomitant]
  8. PRILOSEC [Concomitant]
  9. DETROL LA [Concomitant]
  10. RHINOCORT [Concomitant]
  11. ASPIRIN [Concomitant]
  12. VITAMIN B1 TAB [Concomitant]
  13. FOLIC ACID [Concomitant]
  14. VITAMIN D [Concomitant]
  15. ESTER-C [Concomitant]
  16. FISH OIL [Concomitant]
  17. CENTRUM SILVER [Concomitant]

REACTIONS (1)
  - DYSGEUSIA [None]
